FAERS Safety Report 6749343-7 (Version None)
Quarter: 2010Q2

REPORT INFORMATION
  Report Type: 
  Country: None (occurrence: None)
  Receive Date: 20100601
  Receipt Date: 20100524
  Transmission Date: 20101027
  Serious: Yes (Death)
  Sender: FDA-Public Use
  Company Number: JP-ABBOTT-10P-087-0645282-00

PATIENT
  Age: 34 Year
  Sex: Female
  Weight: 45 kg

DRUGS (6)
  1. LEUPROLIDE ACETATE [Suspect]
     Indication: BREAST CANCER FEMALE
     Route: 058
     Dates: start: 20070308, end: 20080904
  2. TAMOXIFEN CITRATE [Concomitant]
     Indication: BREAST CANCER FEMALE
     Route: 048
     Dates: start: 20070308, end: 20070905
  3. FEMARA [Concomitant]
     Indication: BREAST CANCER FEMALE
     Route: 048
     Dates: start: 20070906, end: 20080604
  4. ZOMETA [Concomitant]
     Indication: BREAST CANCER FEMALE
     Route: 040
     Dates: start: 20070719
  5. FARESTON [Concomitant]
     Indication: BREAST CANCER FEMALE
     Route: 048
     Dates: start: 20080605, end: 20080820
  6. AROMASIN [Concomitant]
     Indication: BREAST CANCER FEMALE
     Route: 048
     Dates: start: 20080821, end: 20091215

REACTIONS (1)
  - BREAST CANCER FEMALE [None]
